FAERS Safety Report 9020796 (Version 1)
Quarter: 2013Q1

REPORT INFORMATION
  Report Type: Spontaneous
  Country: None (occurrence: US)
  Receive Date: 20130119
  Receipt Date: 20130119
  Transmission Date: 20140127
  Serious: No
  Sender: FDA-Public Use
  Company Number: US-ALLERGAN-1205504US

PATIENT
  Age: 50 Year
  Sex: 0

DRUGS (2)
  1. BOTOX COSMETIC [Suspect]
     Indication: SKIN WRINKLING
     Dosage: 50 UNITS, SINGLE
     Route: 030
     Dates: start: 20120413, end: 20120413
  2. BOTOX COSMETIC [Suspect]
     Indication: SKIN WRINKLING

REACTIONS (3)
  - Application site reaction [Unknown]
  - Erythema [Unknown]
  - Pruritus [Unknown]
